FAERS Safety Report 12326851 (Version 1)
Quarter: 2016Q2

REPORT INFORMATION
  Report Type: Spontaneous
  Country: None (occurrence: None)
  Receive Date: 20160502
  Receipt Date: 20160502
  Transmission Date: 20160815
  Serious: No
  Sender: FDA-Public Use
  Company Number: None

PATIENT
  Age: 57 Year
  Sex: Male

DRUGS (1)
  1. CORTISONE SHOTS [Suspect]
     Active Substance: CORTISONE\HYDROCORTISONE

REACTIONS (5)
  - Blood glucose increased [None]
  - Asthma [None]
  - Loss of consciousness [None]
  - Fatigue [None]
  - Glycosylated haemoglobin increased [None]
